FAERS Safety Report 7269431-9 (Version None)
Quarter: 2011Q1

REPORT INFORMATION
  Report Type: 
  Country: None (occurrence: None)
  Receive Date: 20110124
  Receipt Date: 20110113
  Transmission Date: 20110831
  Serious: Yes (Hospitalization, Other)
  Sender: FDA-Public Use
  Company Number: JPI-P-013494

PATIENT
  Age: 49 Year
  Sex: Female
  Weight: 171 kg

DRUGS (7)
  1. XYREM [Suspect]
     Indication: NARCOLEPSY
     Dosage: SEE IMAGE
     Dates: start: 20091214
  2. XYREM [Suspect]
     Indication: SOMNOLENCE
     Dosage: SEE IMAGE
     Dates: start: 20091214
  3. XYREM [Suspect]
     Indication: NARCOLEPSY
     Dosage: SEE IMAGE
     Dates: start: 20080514
  4. XYREM [Suspect]
     Indication: SOMNOLENCE
     Dosage: SEE IMAGE
     Dates: start: 20080514
  5. FLUOXETINE [Concomitant]
  6. SIMVASTATIN [Concomitant]
  7. METOPROLOL [Concomitant]

REACTIONS (6)
  - POLLAKIURIA [None]
  - ERYTHEMA [None]
  - SOMNAMBULISM [None]
  - HYPOAESTHESIA [None]
  - ARTERIAL DISORDER [None]
  - SLEEP PARALYSIS [None]
